FAERS Safety Report 18924152 (Version 1)
Quarter: 2021Q1

REPORT INFORMATION
  Report Type: Spontaneous
  Country: GB (occurrence: GB)
  Receive Date: 20210222
  Receipt Date: 20210222
  Transmission Date: 20210420
  Serious: Yes (Other)
  Sender: FDA-Public Use
  Company Number: GB-ALLERGAN-2106970US

PATIENT
  Sex: Female

DRUGS (2)
  1. AJOVY [Suspect]
     Active Substance: FREMANEZUMAB-VFRM
     Indication: MIGRAINE
     Dosage: UNK, Q MONTH
     Route: 065
     Dates: start: 20200927
  2. BOTOX [Suspect]
     Active Substance: ONABOTULINUMTOXINA
     Indication: PRODUCT USED FOR UNKNOWN INDICATION
     Dosage: UNK UNK, SINGLE
     Route: 065

REACTIONS (11)
  - Visual impairment [Unknown]
  - Product dose omission issue [Unknown]
  - Migraine [Unknown]
  - Injection site pain [Unknown]
  - Sensory loss [Unknown]
  - Headache [Unknown]
  - Vomiting [Unknown]
  - Drug ineffective [Unknown]
  - Hypersomnia [Unknown]
  - Accidental exposure to product [Unknown]
  - Injection site erythema [Unknown]

NARRATIVE: CASE EVENT DATE: 2020
